FAERS Safety Report 6254943-7 (Version None)
Quarter: 2009Q3

REPORT INFORMATION
  Report Type: 
  Country: None (occurrence: None)
  Receive Date: 20090702
  Receipt Date: 20090622
  Transmission Date: 20100115
  Serious: Yes (Other)
  Sender: FDA-Public Use
  Company Number: FR-PFIZER INC-2009230215

PATIENT

DRUGS (2)
  1. ZYVOXID [Suspect]
     Dosage: 600 MG, 2X/DAY
     Route: 048
  2. FUCIDINE CAP [Suspect]
     Indication: STAPHYLOCOCCAL INFECTION
     Dosage: UNK

REACTIONS (2)
  - ANAEMIA [None]
  - HEPATITIS CHOLESTATIC [None]
